FAERS Safety Report 4676163-X (Version None)
Quarter: 2005Q2

REPORT INFORMATION
  Report Type: 
  Country: None (occurrence: None)
  Receive Date: 20050527
  Receipt Date: 20050407
  Transmission Date: 20051028
  Serious: No
  Sender: FDA-Public Use
  Company Number: US-GLAXOSMITHKLINE-A0553197A

PATIENT
  Age: 43 Year
  Sex: Female

DRUGS (2)
  1. WELLBUTRIN XL [Suspect]
     Indication: DEPRESSION
     Dosage: 150MG PER DAY
     Route: 048
     Dates: start: 20050201
  2. VITAMINS [Concomitant]

REACTIONS (7)
  - AGITATION [None]
  - ANOREXIA [None]
  - BLEPHAROSPASM [None]
  - DRY SKIN [None]
  - DYSGEUSIA [None]
  - NAUSEA [None]
  - THINKING ABNORMAL [None]
